FAERS Safety Report 4293962-7 (Version None)
Quarter: 2004Q1

REPORT INFORMATION
  Report Type: 
  Country: None (occurrence: None)
  Receive Date: 20040211
  Receipt Date: 20040121
  Transmission Date: 20041129
  Serious: Yes (Hospitalization)
  Sender: FDA-Public Use
  Company Number: USA030228457

PATIENT
  Age: 70 Year
  Sex: Female
  Weight: 68 kg

DRUGS (13)
  1. FORTEO [Suspect]
     Indication: OSTEOPOROSIS
     Dosage: 20 UG/DAY
     Dates: start: 20030128
  2. DEPAKOTE [Concomitant]
  3. BEXTRA [Concomitant]
  4. LEXAPRO [Concomitant]
  5. CITRACAL (CALCIUM CITRATE) [Concomitant]
  6. ADVAIR DISKUS 100/50 [Concomitant]
  7. MAGNESIUM [Concomitant]
  8. LORCET-HD [Concomitant]
  9. TRAZODONE HCL [Concomitant]
  10. VITAMIN CAP [Concomitant]
  11. ALBUTEROL [Concomitant]
  12. SALMON OIL (SALMON OIL) [Concomitant]
  13. ZINC SULFATE [Concomitant]

REACTIONS (5)
  - ANGINA PECTORIS [None]
  - DIZZINESS [None]
  - FATIGUE [None]
  - GASTRITIS [None]
  - PHARMACEUTICAL PRODUCT COMPLAINT [None]
